FAERS Safety Report 9483703 (Version 7)
Quarter: 2016Q1

REPORT INFORMATION
  Report Type: Report from Study
  Country: CA (occurrence: CA)
  Receive Date: 20130828
  Receipt Date: 20160215
  Transmission Date: 20160526
  Serious: Yes (Hospitalization, Other)
  Sender: FDA-Public Use
  Company Number: CA-ROCHE-1231246

PATIENT
  Age: 52 Year
  Sex: Female

DRUGS (2)
  1. RITUXAN [Suspect]
     Active Substance: RITUXIMAB
     Indication: B-CELL LYMPHOMA RECURRENT
     Route: 042
     Dates: start: 20120228
  2. RITUXAN [Suspect]
     Active Substance: RITUXIMAB
     Route: 042
     Dates: start: 20130829, end: 20151023

REACTIONS (8)
  - Urinary tract infection [Recovered/Resolved]
  - Disease progression [Not Recovered/Not Resolved]
  - Weight decreased [Unknown]
  - Infusion related reaction [Recovered/Resolved]
  - Hypersensitivity [Unknown]
  - Pyrexia [Unknown]
  - Ascites [Not Recovered/Not Resolved]
  - White blood cell count decreased [Unknown]

NARRATIVE: CASE EVENT DATE: 20120228
